FAERS Safety Report 21693992 (Version 1)
Quarter: 2022Q4

REPORT INFORMATION
  Report Type: Spontaneous
  Country: US (occurrence: None)
  Receive Date: 20221206
  Receipt Date: 20221206
  Transmission Date: 20230113
  Serious: Yes (unspecified)
  Sender: FDA-Public Use
  Company Number: None

PATIENT
  Age: 59 Year
  Sex: Male
  Weight: 119 kg

DRUGS (2)
  1. MVASI [Suspect]
     Active Substance: BEVACIZUMAB-AWWB
     Indication: Rectal adenocarcinoma
     Dosage: FREQUENCY : EVERY OTHER WEEK;?
     Route: 042
     Dates: start: 20221122
  2. MVASI [Suspect]
     Active Substance: BEVACIZUMAB-AWWB
     Indication: Rectal adenocarcinoma
     Dosage: FREQUENCY : EVERY OTHER WEEK;?
     Route: 042
     Dates: start: 20221122

REACTIONS (5)
  - Infusion related reaction [None]
  - Flushing [None]
  - Dyspnoea [None]
  - Cough [None]
  - Throat irritation [None]

NARRATIVE: CASE EVENT DATE: 20221206
